FAERS Safety Report 13351903 (Version 1)
Quarter: 2017Q1

REPORT INFORMATION
  Report Type: Spontaneous
  Country: US (occurrence: US)
  Receive Date: 20170320
  Receipt Date: 20170320
  Transmission Date: 20170429
  Serious: No
  Sender: FDA-Public Use
  Company Number: US-SA-2016SA178127

PATIENT
  Sex: Female

DRUGS (1)
  1. NASACORT ALLERGY 24HR [Suspect]
     Active Substance: TRIAMCINOLONE ACETONIDE
     Indication: MULTIPLE ALLERGIES
     Dosage: DOSE_1 SPRAY PER NOSTRIL
     Route: 045
     Dates: end: 20160825

REACTIONS (10)
  - Muscle tightness [Unknown]
  - Back pain [Unknown]
  - Influenza like illness [Unknown]
  - Arthralgia [Unknown]
  - Dysphagia [Unknown]
  - Oropharyngeal discomfort [Unknown]
  - Dyspepsia [Unknown]
  - Lymphadenopathy [Unknown]
  - Fatigue [Unknown]
  - Therapeutic response decreased [Unknown]
